FAERS Safety Report 24305761 (Version 4)
Quarter: 2024Q4

REPORT INFORMATION
  Report Type: Spontaneous
  Country: BR (occurrence: BR)
  Receive Date: 20240911
  Receipt Date: 20241004
  Transmission Date: 20250115
  Serious: Yes (Life-Threatening, Hospitalization, Other)
  Sender: PHARMACOSMOS
  Company Number: BR-NEBO-668869

PATIENT
  Age: 68 Year
  Sex: Male
  Weight: 88.5 kg

DRUGS (7)
  1. IRON ISOMALTOSIDE 1000 [Suspect]
     Active Substance: IRON ISOMALTOSIDE 1000
     Indication: Blood iron decreased
     Dates: start: 20240830, end: 20240830
  2. IRON ISOMALTOSIDE 1000 [Suspect]
     Active Substance: IRON ISOMALTOSIDE 1000
     Indication: Blood iron decreased
     Dates: start: 20240830, end: 20240830
  3. ENTRESTO [Concomitant]
     Active Substance: SACUBITRIL\VALSARTAN
     Dates: start: 20240827
  4. ENOXAPARIN SODIUM [Concomitant]
     Active Substance: ENOXAPARIN SODIUM
     Dates: start: 20240828
  5. LASIX [Concomitant]
     Active Substance: FUROSEMIDE
     Dates: start: 20240829
  6. CARVEDILOL [Concomitant]
     Active Substance: CARVEDILOL
     Dates: start: 20240827
  7. AMIODARONE [Concomitant]
     Active Substance: AMIODARONE
     Dates: start: 20240827

REACTIONS (2)
  - Anaemia [Unknown]
  - Anaphylactic reaction [Recovered/Resolved]

NARRATIVE: CASE EVENT DATE: 20240830
